FAERS Safety Report 24560027 (Version 2)
Quarter: 2024Q4

REPORT INFORMATION
  Report Type: Report from Study
  Country: DE (occurrence: DE)
  Receive Date: 20241029
  Receipt Date: 20241105
  Transmission Date: 20250115
  Serious: No
  Sender: ROCHE
  Company Number: DE-ML39632-2333424-0

PATIENT
  Age: 29 Year
  Sex: Female
  Weight: 57 kg

DRUGS (5)
  1. OCREVUS [Suspect]
     Active Substance: OCRELIZUMAB
     Indication: Relapsing multiple sclerosis
     Route: 042
     Dates: start: 20210316, end: 20210330
  2. OCREVUS [Suspect]
     Active Substance: OCRELIZUMAB
     Route: 042
     Dates: start: 20210930, end: 20240311
  3. OCREVUS [Suspect]
     Active Substance: OCRELIZUMAB
     Dosage: MOST RECENT DOSE RECEIVED ON 11-MAR-2024
     Route: 042
     Dates: start: 20240311
  4. CETIRIZINE HYDROCHLORIDE [Concomitant]
     Active Substance: CETIRIZINE HYDROCHLORIDE
     Dosage: DEFINITION OF THE INTERVAL: AS REQUIRED
     Route: 048
     Dates: start: 2011
  5. CHARIVA [Concomitant]
     Route: 048

REACTIONS (1)
  - Alopecia areata [Not Recovered/Not Resolved]

NARRATIVE: CASE EVENT DATE: 20230901
